FAERS Safety Report 9105273 (Version 1)
Quarter: 2013Q1

REPORT INFORMATION
  Report Type: Spontaneous
  Country: US (occurrence: US)
  Receive Date: 20130220
  Receipt Date: 20130220
  Transmission Date: 20140127
  Serious: Yes (Other)
  Sender: FDA-Public Use
  Company Number: US-GLAXOSMITHKLINE-A1011867A

PATIENT
  Age: 71 Year
  Sex: Female

DRUGS (2)
  1. TYKERB [Suspect]
     Indication: BREAST CANCER
     Dosage: 1250MG PER DAY
     Route: 048
     Dates: start: 201210
  2. HERCEPTIN [Concomitant]

REACTIONS (2)
  - Malignant neoplasm progression [Not Recovered/Not Resolved]
  - Drug ineffective [Unknown]
